FAERS Safety Report 22634629 (Version 5)
Quarter: 2024Q2

REPORT INFORMATION
  Report Type: Spontaneous
  Country: US (occurrence: US)
  Receive Date: 20230623
  Receipt Date: 20240426
  Transmission Date: 20240715
  Serious: No
  Sender: FDA-Public Use
  Company Number: US-VERTEX PHARMACEUTICALS-2023-008664

PATIENT

DRUGS (3)
  1. TRIKAFTA [Suspect]
     Active Substance: ELEXACAFTOR\IVACAFTOR\TEZACAFTOR
     Indication: Cystic fibrosis
     Dosage: UNKNOWN FREQUENCY
     Route: 048
  2. CONCERTA [Concomitant]
     Active Substance: METHYLPHENIDATE HYDROCHLORIDE
     Indication: Attention deficit hyperactivity disorder
  3. RITALIN [Concomitant]
     Active Substance: METHYLPHENIDATE HYDROCHLORIDE
     Indication: Attention deficit hyperactivity disorder

REACTIONS (11)
  - Rash pruritic [Unknown]
  - Headache [Unknown]
  - Mental disorder [Recovering/Resolving]
  - Bronchiectasis [Recovering/Resolving]
  - Attention deficit hyperactivity disorder [Unknown]
  - Intrusive thoughts [Unknown]
  - Brain fog [Unknown]
  - Somnolence [Unknown]
  - Insomnia [Unknown]
  - Anxiety [Unknown]
  - Disturbance in attention [Not Recovered/Not Resolved]
